FAERS Safety Report 8339180 (Version 3)
Quarter: 2012Q4

REPORT INFORMATION
  Report Type: 
  Country: FR (occurrence: FR)
  Receive Date: 20120117
  Receipt Date: 20120830
  Transmission Date: 20130627
  Serious: Yes (Death, Hospitalization, Other)
  Sender: FDA-Public Use
  Company Number: FR-CELGENEUS-056-21880-12010151

PATIENT
  Age: 79 Year
  Sex: Female

DRUGS (9)
  1. REVLIMID [Suspect]
     Indication: MULTIPLE MYELOMA
     Dosage: 15 Milligram
     Route: 048
     Dates: start: 20110520
  2. REVLIMID [Suspect]
     Dosage: 20 Milligram
     Route: 048
     Dates: start: 20110617, end: 20110901
  3. REVLIMID [Suspect]
     Dosage: 10 Milligram
     Route: 048
     Dates: start: 201109, end: 20120116
  4. BACTRIM [Concomitant]
     Indication: PROPHYLAXIS
     Route: 065
     Dates: start: 201105, end: 201202
  5. MEDROL [Concomitant]
     Indication: DRUG USE FOR UNKNOWN INDICATION
     Route: 065
     Dates: start: 201105, end: 20120116
  6. ZELITREX [Concomitant]
     Indication: PROPHYLAXIS
     Route: 065
     Dates: start: 201105, end: 201202
  7. ZOMETA [Concomitant]
     Indication: DRUG USE FOR UNKNOWN INDICATION
     Route: 065
     Dates: start: 20110506, end: 20110506
  8. ZOMETA [Concomitant]
     Route: 065
     Dates: start: 20110616, end: 20110616
  9. ZOMETA [Concomitant]
     Route: 065
     Dates: start: 20110905, end: 20110905

REACTIONS (1)
  - Diffuse large B-cell lymphoma [Fatal]
